FAERS Safety Report 6838926-1 (Version None)
Quarter: 2010Q3

REPORT INFORMATION
  Report Type: 
  Country: None (occurrence: None)
  Receive Date: 20100708
  Receipt Date: 20100507
  Transmission Date: 20110219
  Serious: Yes (Other)
  Sender: FDA-Public Use
  Company Number: GB-ACCORD-004760

PATIENT
  Age: 72 Year
  Sex: Female
  Weight: 96 kg

DRUGS (7)
  1. SIMVASTATIN [Suspect]
     Indication: PRODUCT USED FOR UNKNOWN INDICATION
     Dosage: ORAL
     Route: 048
  2. ATORVASTATIN CALCIUM [Suspect]
     Indication: PRODUCT USED FOR UNKNOWN INDICATION
     Dates: end: 20040201
  3. PIOGLITAZONE(PIOGLITAZONONE) [Suspect]
     Indication: TYPE 2 DIABETES MELLITUS
     Dosage: 30.00-MG-1. / 00PER-1.OD
     Dates: end: 20070201
  4. ROSIGLITAZONE(ROSIGLITAZE) [Suspect]
     Indication: TYPE 2 DIABETES MELLITUS
     Dosage: 8.00-MG-1.0 /0PER-1.0DA
     Dates: start: 20070501
  5. SUPRALIP (SUPRALIP) [Suspect]
     Indication: PRODUCT USED FOR UNKNOWN INDICATION
     Dosage: 160.00-MH-/1.00PER-1.0 DAYS
     Dates: start: 20060901, end: 20060901
  6. METFORMIN HCL [Concomitant]
  7. ROSUVASTATIN (ROSUVASTATIN) [Concomitant]

REACTIONS (8)
  - BLOOD CHOLESTEROL INCREASED [None]
  - BLOOD TRIGLYCERIDES INCREASED [None]
  - DIABETES MELLITUS INADEQUATE CONTROL [None]
  - HIGH DENSITY LIPOPROTEIN DECREASED [None]
  - INSULIN RESISTANCE [None]
  - LOW DENSITY LIPOPROTEIN INCREASED [None]
  - MYALGIA [None]
  - PARADOXICAL DRUG REACTION [None]
